FAERS Safety Report 11855090 (Version 1)
Quarter: 2015Q4

REPORT INFORMATION
  Report Type: Spontaneous
  Country: US (occurrence: None)
  Receive Date: 20151218
  Receipt Date: 20151218
  Transmission Date: 20160305
  Serious: Yes (Other)
  Sender: FDA-Public Use
  Company Number: None

PATIENT
  Age: 46 Year
  Sex: Female
  Weight: 78.47 kg

DRUGS (1)
  1. PARAGARD T 380A [Suspect]
     Active Substance: COPPER

REACTIONS (6)
  - Dysmenorrhoea [None]
  - Menorrhagia [None]
  - Device breakage [None]
  - Intentional device misuse [None]
  - Complication of device removal [None]
  - Pelvic pain [None]

NARRATIVE: CASE EVENT DATE: 20151106
